FAERS Safety Report 6093042-4 (Version None)
Quarter: 2009Q1

REPORT INFORMATION
  Report Type: 
  Country: None (occurrence: None)
  Receive Date: 20090224
  Receipt Date: 20090216
  Transmission Date: 20090719
  Serious: Yes (Other)
  Sender: FDA-Public Use
  Company Number: 2009JP000888

PATIENT
  Age: 60 Year
  Sex: Male

DRUGS (11)
  1. PROGRAF [Suspect]
     Indication: STILL'S DISEASE ADULT ONSET
  2. PREDNISOLONE [Concomitant]
  3. STEREOID [Concomitant]
  4. CYCLOPHOSPHAMIDE [Concomitant]
  5. METHOTREXATE [Concomitant]
  6. AZATHIOPRINE [Concomitant]
  7. CYCLOSPORINE [Concomitant]
  8. ANTI-TNF-ALPHA (ANTI-TUMOUR NECROSIS FACTOR ALPHA) [Concomitant]
  9. ANTI IL-6R (INTERLEUKIN-6 RECEPTOR) ANTIBODY [Concomitant]
  10. RITUXIMAB (RITUXIMAB) [Concomitant]
  11. INTRAVENOUS IMMUNOGLOBULIN INJECTION [Concomitant]

REACTIONS (3)
  - DRUG EFFECT DECREASED [None]
  - MENINGITIS ASEPTIC [None]
  - NO THERAPEUTIC RESPONSE [None]
